FAERS Safety Report 17400302 (Version 1)
Quarter: 2020Q1

REPORT INFORMATION
  Report Type: Spontaneous
  Country: FR (occurrence: FR)
  Receive Date: 20200211
  Receipt Date: 20200211
  Transmission Date: 20200409
  Serious: Yes (Other)
  Sender: FDA-Public Use
  Company Number: FR-ZYDUS-047380

PATIENT
  Age: 48 Year
  Sex: Male
  Weight: 66 kg

DRUGS (3)
  1. SERTRALINE [Suspect]
     Active Substance: SERTRALINE HYDROCHLORIDE
     Indication: MAJOR DEPRESSION
     Route: 048
     Dates: start: 20191230
  2. OXAZEPAM. [Suspect]
     Active Substance: OXAZEPAM
     Indication: MAJOR DEPRESSION
     Route: 048
  3. ZOPICLONE [Suspect]
     Active Substance: ZOPICLONE
     Indication: PRODUCT USED FOR UNKNOWN INDICATION
     Route: 048
     Dates: start: 20191230

REACTIONS (2)
  - Aggression [Recovered/Resolved with Sequelae]
  - Homicide [Not Recovered/Not Resolved]

NARRATIVE: CASE EVENT DATE: 20200106
